FAERS Safety Report 9252656 (Version 31)
Quarter: 2016Q4

REPORT INFORMATION
  Report Type: Spontaneous
  Country: US (occurrence: US)
  Receive Date: 20130424
  Receipt Date: 20161114
  Transmission Date: 20170207
  Serious: Yes (Hospitalization, Other)
  Sender: FDA-Public Use
  Company Number: US-GLAXOSMITHKLINE-A1021168A

PATIENT
  Age: 57 Year
  Sex: Female

DRUGS (26)
  1. FLOLAN [Suspect]
     Active Substance: EPOPROSTENOL SODIUM
     Dosage: 30 NG/KG/MIN, 75,000 NG/ML, 1.5 MG
  2. FLOLAN [Suspect]
     Active Substance: EPOPROSTENOL SODIUM
     Indication: PULMONARY ARTERIAL HYPERTENSION
     Dosage: 29.85 NG/KG/MIN CONTINUOUSLY, CONCENTRATION: 60,000 NG/ML, PUMP RATE: 91 ML/DAY, VIAL STRENGTH:[...]
     Route: 042
     Dates: start: 20061025
  3. FLOLAN [Suspect]
     Active Substance: EPOPROSTENOL SODIUM
     Dosage: 30 NG/KG/MIN (CONCENTRATION 75,000 NG/ML, 73 ML/DAY, VIAL STRENGTH 1.5 MG), CO
     Route: 042
  4. FLOLAN [Suspect]
     Active Substance: EPOPROSTENOL SODIUM
     Dosage: 30 DF, CO
  5. COUMADIN [Concomitant]
     Active Substance: WARFARIN SODIUM
  6. REVATIO [Concomitant]
     Active Substance: SILDENAFIL CITRATE
  7. FLOLAN [Suspect]
     Active Substance: EPOPROSTENOL SODIUM
     Dosage: UNK
     Dates: start: 20061109
  8. FLOLAN [Suspect]
     Active Substance: EPOPROSTENOL SODIUM
     Dosage: 30 NG/KG/MIN CONTINUOUS; CONCENTRATION: 75,000 NG/ML; VIAL STRENGTH: 1.5 MG
     Route: 042
     Dates: start: 20061025
  9. FLOLAN [Suspect]
     Active Substance: EPOPROSTENOL SODIUM
     Dosage: UNK, CO
     Dates: start: 20061108
  10. FLOLAN [Suspect]
     Active Substance: EPOPROSTENOL SODIUM
     Dosage: 30 NG/KG/MIN
     Dates: start: 20061108
  11. FLOLAN [Suspect]
     Active Substance: EPOPROSTENOL SODIUM
     Dosage: UNK
  12. ADCIRCA [Concomitant]
     Active Substance: TADALAFIL
  13. FLOLAN [Suspect]
     Active Substance: EPOPROSTENOL SODIUM
     Dosage: 30 NG/KG/MIN, CO
     Dates: start: 20061108
  14. LETAIRIS [Concomitant]
     Active Substance: AMBRISENTAN
  15. FLOLAN [Suspect]
     Active Substance: EPOPROSTENOL SODIUM
     Dosage: UNK
     Dates: start: 20061109
  16. FLOLAN [Suspect]
     Active Substance: EPOPROSTENOL SODIUM
     Dosage: UNK
  17. FLOLAN [Suspect]
     Active Substance: EPOPROSTENOL SODIUM
     Dosage: 22 DF, CO
     Route: 042
  18. FLOLAN [Suspect]
     Active Substance: EPOPROSTENOL SODIUM
     Dosage: 30 NG/KG/MIN, CO
  19. FLOLAN [Suspect]
     Active Substance: EPOPROSTENOL SODIUM
     Indication: PULMONARY ARTERIAL HYPERTENSION
     Dosage: UNK
  20. SILDENAFIL CITRATE. [Concomitant]
     Active Substance: SILDENAFIL CITRATE
  21. FLOLAN [Suspect]
     Active Substance: EPOPROSTENOL SODIUM
     Dosage: 30 NG/KG/MIN
     Dates: start: 20061108
  22. FLOLAN [Suspect]
     Active Substance: EPOPROSTENOL SODIUM
     Dosage: UNK
     Dates: start: 20061109
  23. FLOLAN [Suspect]
     Active Substance: EPOPROSTENOL SODIUM
     Dosage: UNK
     Dates: start: 20061109
  24. FLOLAN [Suspect]
     Active Substance: EPOPROSTENOL SODIUM
     Dosage: UNK
     Dates: start: 20061109
  25. FLOLAN [Suspect]
     Active Substance: EPOPROSTENOL SODIUM
     Dosage: UNK
     Dates: start: 20061109
  26. FLOLAN [Suspect]
     Active Substance: EPOPROSTENOL SODIUM
     Dosage: 30 NG/KG/MIN CONTINUOUS
     Dates: start: 20061026

REACTIONS (42)
  - Treatment noncompliance [Recovered/Resolved]
  - Palpitations [Recovered/Resolved]
  - Accident [Unknown]
  - Contusion [Not Recovered/Not Resolved]
  - Bacterial infection [Recovered/Resolved]
  - Hypoxia [Recovered/Resolved]
  - Arteriovenous fistula [Unknown]
  - Cellulitis [Unknown]
  - Complication associated with device [Unknown]
  - Ill-defined disorder [Recovered/Resolved]
  - Pain [Unknown]
  - Loss of consciousness [Unknown]
  - Fluid overload [Recovered/Resolved]
  - Pyrexia [Unknown]
  - Central venous catheter removal [Unknown]
  - Dizziness [Unknown]
  - Sluggishness [Unknown]
  - Intensive care [Not Recovered/Not Resolved]
  - Dyspnoea [Recovered/Resolved]
  - Fluid retention [Unknown]
  - Cardiac disorder [Recovered/Resolved]
  - Viral infection [Recovered/Resolved]
  - Epistaxis [Unknown]
  - Fall [Unknown]
  - Localised infection [Recovered/Resolved]
  - Catheter site infection [Recovered/Resolved]
  - Right ventricular failure [Recovered/Resolved]
  - Pneumonia [Unknown]
  - Blood pressure decreased [Unknown]
  - Catheter placement [Recovered/Resolved]
  - Cardiac failure [Recovered/Resolved]
  - Substance use [Unknown]
  - Weight increased [Recovered/Resolved]
  - Dialysis [Unknown]
  - Hospitalisation [Not Recovered/Not Resolved]
  - Wound infection [Unknown]
  - Cardiomegaly [Recovered/Resolved]
  - Diet noncompliance [Recovered/Resolved]
  - Traumatic haematoma [Not Recovered/Not Resolved]
  - Joint swelling [Not Recovered/Not Resolved]
  - Herpes zoster [Recovered/Resolved]
  - Drug dose omission [Unknown]

NARRATIVE: CASE EVENT DATE: 20130707
